FAERS Safety Report 9494662 (Version 2)
Quarter: 2013Q3

REPORT INFORMATION
  Report Type: Spontaneous
  Country: US (occurrence: US)
  Receive Date: 20130903
  Receipt Date: 20130903
  Transmission Date: 20140515
  Serious: Yes (Hospitalization)
  Sender: FDA-Public Use
  Company Number: US-INCYTE CORPORATION-2013IN001678

PATIENT
  Age: 61 Year
  Sex: Male

DRUGS (9)
  1. JAKAFI [Suspect]
     Indication: MYELOFIBROSIS
     Dosage: 10 MG, BID
     Route: 048
     Dates: start: 20130708
  2. VERAPAMIL [Concomitant]
  3. DIOVAN [Concomitant]
  4. POTASSIUM CHLORIDE [Concomitant]
  5. REGLAN [Concomitant]
  6. FOLIC ACID [Concomitant]
  7. MVI [Concomitant]
  8. THIAMINE [Concomitant]
     Dosage: 100 MG, UNK
  9. LORAZEPAM [Concomitant]

REACTIONS (2)
  - Hospitalisation [Unknown]
  - Haemoglobin decreased [Unknown]
